FAERS Safety Report 23776302 (Version 1)
Quarter: 2024Q2

REPORT INFORMATION
  Report Type: Spontaneous
  Country: BR (occurrence: BR)
  Receive Date: 20240424
  Receipt Date: 20240424
  Transmission Date: 20240716
  Serious: Yes (Other)
  Sender: FDA-Public Use
  Company Number: BR-PHATHOM PHARMACEUTICALS INC.-2024PHT00227

PATIENT
  Sex: Female
  Weight: 45 kg

DRUGS (8)
  1. VONOPRAZAN FUMARATE [Suspect]
     Active Substance: VONOPRAZAN FUMARATE
     Indication: Gastrooesophageal reflux disease
     Dosage: 1 DOSAGE FORM, 1X/DAY
  2. CITALOPRAM [Concomitant]
     Active Substance: CITALOPRAM\CITALOPRAM HYDROBROMIDE
  3. QUETIAPINE [Concomitant]
     Active Substance: QUETIAPINE
  4. MEMANTINE [Concomitant]
     Active Substance: MEMANTINE
  5. MACRODANTIN [Concomitant]
     Active Substance: NITROFURANTOIN
  6. DPREV [Concomitant]
  7. DOMPERIDONE [Concomitant]
     Active Substance: DOMPERIDONE
  8. LAMOTRIGINE [Concomitant]
     Active Substance: LAMOTRIGINE

REACTIONS (4)
  - Dementia Alzheimer^s type [Unknown]
  - Incorrect product administration duration [Unknown]
  - Off label use [Unknown]
  - Wrong technique in product usage process [Unknown]
